FAERS Safety Report 13547480 (Version 2)
Quarter: 2017Q2

REPORT INFORMATION
  Report Type: Report from Study
  Country: US (occurrence: US)
  Receive Date: 20170515
  Receipt Date: 20170602
  Transmission Date: 20170830
  Serious: Yes (Hospitalization)
  Sender: FDA-Public Use
  Company Number: US-VIFOR (INTERNATIONAL) INC.-VIT-2017-05175

PATIENT
  Age: 86 Year
  Sex: Female

DRUGS (8)
  1. VELTASSA [Suspect]
     Active Substance: PATIROMER
     Indication: HYPERKALAEMIA
     Route: 048
  2. ERGOCALCIFEROL. [Concomitant]
     Active Substance: ERGOCALCIFEROL
  3. ELIQUIS [Concomitant]
     Active Substance: APIXABAN
  4. ACETYLSALICYLIC ACID [Concomitant]
     Active Substance: ASPIRIN
  5. TYLENOL [Concomitant]
     Active Substance: ACETAMINOPHEN
  6. PREDNISONE. [Concomitant]
     Active Substance: PREDNISONE
  7. MEGESTROL AC [Concomitant]
  8. OMEPRAZOLE. [Concomitant]
     Active Substance: OMEPRAZOLE

REACTIONS (3)
  - Infection [Unknown]
  - Oedema peripheral [Recovered/Resolved]
  - Pain [Unknown]

NARRATIVE: CASE EVENT DATE: 20170512
